FAERS Safety Report 9395716 (Version 1)
Quarter: 2013Q3

REPORT INFORMATION
  Report Type: Spontaneous
  Country: US (occurrence: US)
  Receive Date: 20130711
  Receipt Date: 20130711
  Transmission Date: 20140515
  Serious: Yes (Other)
  Sender: FDA-Public Use
  Company Number: US-TEVA-418122USA

PATIENT
  Age: 35 Year
  Sex: Female

DRUGS (3)
  1. METHYLPREDNISOLONE [Suspect]
     Route: 065
  2. PREDNISONE [Suspect]
     Indication: INTERSTITIAL LUNG DISEASE
     Dosage: 80MG DAILY
     Route: 065
  3. AZITHROMYCIN [Concomitant]
     Indication: PNEUMONIA

REACTIONS (5)
  - Interstitial lung disease [Recovering/Resolving]
  - Dermatitis acneiform [Recovered/Resolved]
  - Cushingoid [Recovered/Resolved]
  - Restlessness [Recovered/Resolved]
  - Anxiety [Recovered/Resolved]
